FAERS Safety Report 8365833-8 (Version None)
Quarter: 2012Q2

REPORT INFORMATION
  Report Type: 
  Country: None (occurrence: None)
  Receive Date: 20120515
  Receipt Date: 20120430
  Transmission Date: 20120825
  Serious: Yes (Death, Other)
  Sender: FDA-Public Use
  Company Number: 2012P1014071

PATIENT
  Age: 74 Year
  Sex: Female
  Weight: 74.8435 kg

DRUGS (1)
  1. MICONAZOLE NITRATE [Suspect]
     Indication: FUNGAL INFECTION
     Dosage: BID;TOP
     Route: 061
     Dates: start: 20111201

REACTIONS (3)
  - PERINEAL ERYTHEMA [None]
  - SKIN EXFOLIATION [None]
  - PERINEAL PAIN [None]
